FAERS Safety Report 5268740-2 (Version None)
Quarter: 2007Q1

REPORT INFORMATION
  Report Type: 
  Country: None (occurrence: None)
  Receive Date: 20061213
  Receipt Date: 20040505
  Transmission Date: 20070707
  Serious: Yes (Other)
  Sender: FDA-Public Use
  Company Number: 2004UW09302

PATIENT
  Age: 68 Year
  Sex: Female
  Weight: 68.0396 kg

DRUGS (6)
  1. IRESSA [Suspect]
     Dates: start: 20040401
  2. ZOCOR [Concomitant]
  3. UNIVASC [Concomitant]
  4. HYDROCHLOROTHIAZIDE [Concomitant]
  5. ALEVE [Concomitant]
  6. DARVOCET-N 100 [Concomitant]

REACTIONS (4)
  - ANOREXIA [None]
  - ERUCTATION [None]
  - RASH [None]
  - WEIGHT DECREASED [None]
